FAERS Safety Report 5060981-2 (Version None)
Quarter: 2006Q3

REPORT INFORMATION
  Report Type: 
  Country: None (occurrence: None)
  Receive Date: 20060720
  Receipt Date: 20060720
  Transmission Date: 20061208
  Serious: Yes (Life-Threatening)
  Sender: FDA-Public Use
  Company Number: None

PATIENT
  Age: 45 Year
  Sex: Female
  Weight: 52.6173 kg

DRUGS (1)
  1. BUSPAR [Suspect]
     Indication: ANXIETY
     Dosage: 1 TABLET EVERY MORNING PO
     Route: 048

REACTIONS (4)
  - CRYING [None]
  - FLAT AFFECT [None]
  - PERSONALITY CHANGE [None]
  - SUICIDAL IDEATION [None]
